FAERS Safety Report 7496451-1 (Version None)
Quarter: 2011Q2

REPORT INFORMATION
  Report Type: 
  Country: None (occurrence: None)
  Receive Date: 20110523
  Receipt Date: 20110519
  Transmission Date: 20111010
  Serious: Yes (Life-Threatening, Hospitalization)
  Sender: FDA-Public Use
  Company Number: PHHY2011DE43375

PATIENT
  Sex: Male
  Weight: 70 kg

DRUGS (1)
  1. SANDOSTATIN LAR [Suspect]

REACTIONS (1)
  - CEREBROVASCULAR ACCIDENT [None]
